FAERS Safety Report 7799514-6 (Version None)
Quarter: 2011Q4

REPORT INFORMATION
  Report Type: 
  Country: None (occurrence: None)
  Receive Date: 20111006
  Receipt Date: 20110929
  Transmission Date: 20120403
  Serious: Yes (Other)
  Sender: FDA-Public Use
  Company Number: FR-AMGEN-FRASP2011048671

PATIENT
  Age: 65 Year
  Sex: Female

DRUGS (2)
  1. ANTINEOPLASTIC AGENTS [Concomitant]
     Indication: COLORECTAL CANCER METASTATIC
  2. VECTIBIX [Suspect]
     Indication: COLORECTAL CANCER METASTATIC

REACTIONS (9)
  - SKIN REACTION [None]
  - HYPOCALCAEMIA [None]
  - ORAL PAIN [None]
  - PHOTOSENSITIVITY REACTION [None]
  - MUCOSAL INFLAMMATION [None]
  - ECZEMA [None]
  - GLOSSITIS [None]
  - HYPONATRAEMIA [None]
  - DEHYDRATION [None]
